FAERS Safety Report 4296699-3 (Version None)
Quarter: 2004Q1

REPORT INFORMATION
  Report Type: 
  Country: None (occurrence: None)
  Receive Date: 20040126
  Receipt Date: 20030905
  Transmission Date: 20041129
  Serious: No
  Sender: FDA-Public Use
  Company Number: USA030844322

PATIENT
  Age: 10 Year
  Sex: Male
  Weight: 31 kg

DRUGS (1)
  1. STRATTERA [Suspect]
     Indication: ASPERGER'S DISORDER
     Dosage: 40 MG/IN THE MORNING
     Dates: start: 20030101, end: 20030601

REACTIONS (3)
  - DECREASED APPETITE [None]
  - GROWTH RETARDATION [None]
  - WEIGHT DECREASED [None]
